FAERS Safety Report 17368492 (Version 1)
Quarter: 2020Q1

REPORT INFORMATION
  Report Type: Spontaneous
  Country: KR (occurrence: KR)
  Receive Date: 20200204
  Receipt Date: 20200204
  Transmission Date: 20200409
  Serious: Yes (Disabling, Other)
  Sender: FDA-Public Use
  Company Number: KR-FRESENIUS KABI-FK202001099

PATIENT
  Sex: Male

DRUGS (1)
  1. GANCICLOVIR FOR INJECTION (MANUFACTURER UNKNOWN) [Suspect]
     Active Substance: GANCICLOVIR
     Indication: CYTOMEGALOVIRUS CHORIORETINITIS
     Dosage: 15MG/0,3ML WAS GIVEN INSTEAD OF 2MG/ 0,04 ML
     Route: 050

REACTIONS (3)
  - Retinopathy [Unknown]
  - Blindness [Unknown]
  - Accidental overdose [Not Recovered/Not Resolved]
